FAERS Safety Report 19901760 (Version 1)
Quarter: 2021Q3

REPORT INFORMATION
  Report Type: Spontaneous
  Country: DE (occurrence: DE)
  Receive Date: 20210930
  Receipt Date: 20210930
  Transmission Date: 20211014
  Serious: Yes (Other)
  Sender: FDA-Public Use
  Company Number: DE-MYLANLABS-2021M1066240

PATIENT
  Sex: Female

DRUGS (18)
  1. CARBAMAZEPINE. [Suspect]
     Active Substance: CARBAMAZEPINE
     Indication: GENERALISED TONIC-CLONIC SEIZURE
     Dosage: UNK
  2. TOPIRAMATE. [Suspect]
     Active Substance: TOPIRAMATE
     Indication: GENERALISED TONIC-CLONIC SEIZURE
     Dosage: UNK
  3. ETHOSUXIMIDE. [Suspect]
     Active Substance: ETHOSUXIMIDE
     Indication: GENERALISED TONIC-CLONIC SEIZURE
     Dosage: UNK
  4. PHENOBARBITAL. [Suspect]
     Active Substance: PHENOBARBITAL
     Indication: SEVERE MYOCLONIC EPILEPSY OF INFANCY
  5. VALPROIC ACID. [Suspect]
     Active Substance: VALPROIC ACID
     Indication: GENERALISED TONIC-CLONIC SEIZURE
     Dosage: UNK
  6. CLOBAZAM. [Suspect]
     Active Substance: CLOBAZAM
     Indication: GENERALISED TONIC-CLONIC SEIZURE
     Dosage: UNK
  7. BROMIDEM [Suspect]
     Active Substance: BROMAZEPAM
     Indication: GENERALISED TONIC-CLONIC SEIZURE
  8. LEVETIRACETAM. [Suspect]
     Active Substance: LEVETIRACETAM
     Indication: GENERALISED TONIC-CLONIC SEIZURE
     Dosage: UNK
  9. VALPROIC ACID. [Suspect]
     Active Substance: VALPROIC ACID
     Indication: SEVERE MYOCLONIC EPILEPSY OF INFANCY
     Dosage: 1000 MILLIGRAM, QD
  10. VALPROIC ACID. [Suspect]
     Active Substance: VALPROIC ACID
     Dosage: 1250 MILLIGRAM, QD
  11. BROMIDEM [Suspect]
     Active Substance: BROMAZEPAM
     Indication: SEVERE MYOCLONIC EPILEPSY OF INFANCY
     Dosage: UNK
     Dates: end: 200901
  12. PRIMIDONE. [Suspect]
     Active Substance: PRIMIDONE
     Indication: GENERALISED TONIC-CLONIC SEIZURE
     Dosage: UNK
  13. PHENOBARBITAL. [Suspect]
     Active Substance: PHENOBARBITAL
     Indication: GENERALISED TONIC-CLONIC SEIZURE
     Dosage: UNK
  14. MESUXIMIDE [Suspect]
     Active Substance: METHSUXIMIDE
     Indication: GENERALISED TONIC-CLONIC SEIZURE
     Dosage: UNK
  15. OXCARBAZEPINE. [Suspect]
     Active Substance: OXCARBAZEPINE
     Indication: GENERALISED TONIC-CLONIC SEIZURE
     Dosage: UNK
  16. LAMOTRIGINE. [Suspect]
     Active Substance: LAMOTRIGINE
     Indication: GENERALISED TONIC-CLONIC SEIZURE
     Dosage: UNK
  17. PHENYTOIN. [Suspect]
     Active Substance: PHENYTOIN
     Indication: GENERALISED TONIC-CLONIC SEIZURE
     Dosage: UNK
  18. SULTIAME [Suspect]
     Active Substance: SULTHIAME
     Indication: GENERALISED TONIC-CLONIC SEIZURE
     Dosage: UNK

REACTIONS (5)
  - Drug ineffective [Unknown]
  - Bradyphrenia [Unknown]
  - Secretion discharge [Unknown]
  - Tremor [Unknown]
  - Obesity [Recovered/Resolved]
